FAERS Safety Report 20467279 (Version 4)
Quarter: 2022Q3

REPORT INFORMATION
  Report Type: Spontaneous
  Country: JP (occurrence: JP)
  Receive Date: 20220214
  Receipt Date: 20220718
  Transmission Date: 20221026
  Serious: Yes (Hospitalization, Other)
  Sender: FDA-Public Use
  Company Number: JP-NOVOPROD-889415

PATIENT
  Sex: Male
  Weight: 53.4 kg

DRUGS (5)
  1. RYBELSUS [Suspect]
     Active Substance: SEMAGLUTIDE
     Indication: Type 2 diabetes mellitus
     Dosage: 3 MG, QD
     Route: 048
     Dates: start: 20220114, end: 20220124
  2. AMLODIPINE [Concomitant]
     Active Substance: AMLODIPINE BESYLATE
     Indication: Hypertension
     Dosage: UNK
     Route: 048
  3. HUMALOG [Concomitant]
     Active Substance: INSULIN LISPRO
     Indication: Type 2 diabetes mellitus
     Dosage: 4 IU, TID
     Route: 058
  4. TAFLUPROST\TIMOLOL [Concomitant]
     Active Substance: TAFLUPROST\TIMOLOL
     Indication: Product used for unknown indication
     Dosage: UNK
  5. PIRENOXINE [Concomitant]
     Active Substance: PIRENOXINE
     Indication: Product used for unknown indication
     Dosage: UNK

REACTIONS (1)
  - Colitis ischaemic [Recovered/Resolved]

NARRATIVE: CASE EVENT DATE: 20220123
